FAERS Safety Report 14670168 (Version 1)
Quarter: 2018Q1

REPORT INFORMATION
  Report Type: Spontaneous
  Country: GB (occurrence: DE)
  Receive Date: 20180322
  Receipt Date: 20180322
  Transmission Date: 20180509
  Serious: Yes (Other)
  Sender: FDA-Public Use
  Company Number: DE-FRESENIUS KABI-FK201803383

PATIENT
  Age: 67 Year
  Sex: Male

DRUGS (2)
  1. LEVOFLOXACIN - 1 A PHARMA [Suspect]
     Active Substance: LEVOFLOXACIN
     Indication: ERYSIPELAS
     Dates: start: 20171228, end: 20180101
  2. LEVOFLOXACIN (MANUFACTURER UNKNOWN) [Suspect]
     Active Substance: LEVOFLOXACIN
     Indication: ERYSIPELAS
     Route: 065
     Dates: start: 20171218, end: 20171227

REACTIONS (3)
  - Mucosal necrosis [Recovered/Resolved]
  - Gastritis [Recovered/Resolved]
  - Pyrexia [Recovered/Resolved]

NARRATIVE: CASE EVENT DATE: 201712
